FAERS Safety Report 11046347 (Version 6)
Quarter: 2017Q2

REPORT INFORMATION
  Report Type: Spontaneous
  Country: US (occurrence: US)
  Receive Date: 20150419
  Receipt Date: 20170407
  Transmission Date: 20170829
  Serious: Yes (Other)
  Sender: FDA-Public Use
  Company Number: US-009507513-1504USA017083

PATIENT
  Sex: Male

DRUGS (3)
  1. FINASTERIDE. [Suspect]
     Active Substance: FINASTERIDE
     Indication: PRODUCT USED FOR UNKNOWN INDICATION
     Dosage: UNK, UNKNOWN
     Route: 065
  2. PROPECIA [Suspect]
     Active Substance: FINASTERIDE
     Dosage: UNK UNK, UNKNOWN
     Route: 048
     Dates: end: 2010
  3. PROPECIA [Suspect]
     Active Substance: FINASTERIDE
     Indication: ALOPECIA
     Dosage: 1 MG, QD
     Route: 048
     Dates: start: 20041028, end: 200505

REACTIONS (22)
  - Anxiety [Unknown]
  - Hypertension [Unknown]
  - Suicidal ideation [Unknown]
  - Emotional distress [Not Recovered/Not Resolved]
  - Insomnia [Not Recovered/Not Resolved]
  - Muscular weakness [Not Recovered/Not Resolved]
  - Libido decreased [Not Recovered/Not Resolved]
  - Partner stress [Unknown]
  - Headache [Unknown]
  - Vertebral artery dissection [Unknown]
  - Cognitive disorder [Not Recovered/Not Resolved]
  - Fatigue [Unknown]
  - Depression [Not Recovered/Not Resolved]
  - Ejaculation failure [Unknown]
  - Asthenia [Unknown]
  - Sleep apnoea syndrome [Unknown]
  - Erectile dysfunction [Not Recovered/Not Resolved]
  - Terminal insomnia [Unknown]
  - Penis disorder [Unknown]
  - Sexual dysfunction [Not Recovered/Not Resolved]
  - Treatment failure [Unknown]
  - Neck pain [Unknown]

NARRATIVE: CASE EVENT DATE: 2009
